FAERS Safety Report 16053934 (Version 3)
Quarter: 2019Q2

REPORT INFORMATION
  Report Type: Report from Study
  Country: US (occurrence: US)
  Receive Date: 20190308
  Receipt Date: 20190531
  Transmission Date: 20190711
  Serious: Yes (Hospitalization)
  Sender: FDA-Public Use
  Company Number: US-ACTELION-A-NJ2019-187156

PATIENT
  Age: 45 Year
  Sex: Female

DRUGS (12)
  1. CARDIZEM LA [Concomitant]
     Active Substance: DILTIAZEM HYDROCHLORIDE
  2. LANTUS [Concomitant]
     Active Substance: INSULIN GLARGINE
  3. BUMETANIDE. [Concomitant]
     Active Substance: BUMETANIDE
  4. NEURONTIN [Concomitant]
     Active Substance: GABAPENTIN
  5. OPSUMIT [Suspect]
     Active Substance: MACITENTAN
     Indication: PULMONARY HYPERTENSION
     Dosage: 10 MG, QD
     Route: 048
     Dates: start: 20181214
  6. METOPROLOL SUCCINATE. [Concomitant]
     Active Substance: METOPROLOL SUCCINATE
  7. COUMADIN [Concomitant]
     Active Substance: WARFARIN SODIUM
  8. KLONOPIN [Concomitant]
     Active Substance: CLONAZEPAM
  9. LIPITOR [Concomitant]
     Active Substance: ATORVASTATIN CALCIUM
  10. RESTORIL [Concomitant]
     Active Substance: TEMAZEPAM
  11. HUMALOG [Concomitant]
     Active Substance: INSULIN LISPRO
  12. PROZAC [Concomitant]
     Active Substance: FLUOXETINE HYDROCHLORIDE

REACTIONS (7)
  - Fatigue [Recovered/Resolved]
  - Tachycardia [Recovered/Resolved]
  - Diverticulitis [Not Recovered/Not Resolved]
  - Dyspnoea [Recovered/Resolved]
  - Dizziness [Recovered/Resolved]
  - Dysuria [Not Recovered/Not Resolved]
  - Oxygen saturation decreased [Recovered/Resolved]

NARRATIVE: CASE EVENT DATE: 201901
